FAERS Safety Report 18709681 (Version 1)
Quarter: 2021Q1

REPORT INFORMATION
  Report Type: Spontaneous
  Country: FR (occurrence: FR)
  Receive Date: 20210106
  Receipt Date: 20210106
  Transmission Date: 20210419
  Serious: Yes (Hospitalization)
  Sender: FDA-Public Use
  Company Number: FR-TEVA-2020-FR-1865057

PATIENT
  Age: 11 Year
  Sex: Female
  Weight: 50 kg

DRUGS (1)
  1. AMOXICILLINE [Suspect]
     Active Substance: AMOXICILLIN
     Indication: DRUG PROVOCATION TEST
     Route: 048
     Dates: start: 20200811, end: 20200811

REACTIONS (3)
  - Oedema peripheral [Recovered/Resolved]
  - Erythema [Recovered/Resolved]
  - Face oedema [Recovered/Resolved]

NARRATIVE: CASE EVENT DATE: 20200811
